FAERS Safety Report 4464965-4 (Version None)
Quarter: 2004Q4

REPORT INFORMATION
  Report Type: 
  Country: None (occurrence: None)
  Receive Date: 20041004
  Receipt Date: 20040419
  Transmission Date: 20050328
  Serious: No
  Sender: FDA-Public Use
  Company Number: 368177

PATIENT
  Sex: Male

DRUGS (1)
  1. COREG [Suspect]
     Indication: HYPERTENSION
     Route: 048

REACTIONS (1)
  - PAIN IN EXTREMITY [None]
